FAERS Safety Report 18179202 (Version 2)
Quarter: 2020Q4

REPORT INFORMATION
  Report Type: Spontaneous
  Country: US (occurrence: US)
  Receive Date: 20200820
  Receipt Date: 20201021
  Transmission Date: 20210113
  Serious: No
  Sender: FDA-Public Use
  Company Number: US-BRISTOL-MYERS SQUIBB COMPANY-BMS-2020-066388

PATIENT
  Age: 49 Year
  Sex: Female
  Weight: 104.32 kg

DRUGS (1)
  1. OPDIVO [Suspect]
     Active Substance: NIVOLUMAB
     Indication: MALIGNANT MELANOMA STAGE III
     Dosage: UNK UNK, QMO
     Route: 042
     Dates: start: 20190805, end: 20200521

REACTIONS (30)
  - Vomiting [Unknown]
  - Fatigue [Unknown]
  - Off label use [Unknown]
  - Rash [Unknown]
  - Decreased appetite [Unknown]
  - Bone pain [Unknown]
  - Back pain [Unknown]
  - Condition aggravated [Unknown]
  - Abdominal distension [Unknown]
  - Nausea [Unknown]
  - Arthralgia [Unknown]
  - Asthenia [Unknown]
  - Inflammation [Unknown]
  - Miliaria [Unknown]
  - Generalised oedema [Unknown]
  - Myalgia [Unknown]
  - Upper respiratory tract infection [Unknown]
  - Joint swelling [Unknown]
  - Pruritus [Unknown]
  - Pyrexia [Unknown]
  - Constipation [Unknown]
  - Headache [Unknown]
  - Abdominal pain [Unknown]
  - Pain in extremity [Unknown]
  - Muscular weakness [Unknown]
  - Peripheral swelling [Unknown]
  - Cough [Unknown]
  - Burning sensation [Unknown]
  - Dyspnoea [Unknown]
  - Diarrhoea [Unknown]

NARRATIVE: CASE EVENT DATE: 20190805
